FAERS Safety Report 6243856-2 (Version None)
Quarter: 2009Q2

REPORT INFORMATION
  Report Type: 
  Country: None (occurrence: None)
  Receive Date: 20090623
  Receipt Date: 20090610
  Transmission Date: 20091009
  Serious: Yes (Hospitalization)
  Sender: FDA-Public Use
  Company Number: 236053K09USA

PATIENT
  Age: 16 Year
  Sex: Male

DRUGS (6)
  1. REBIF [Suspect]
     Indication: OFF LABEL USE
     Dosage: 44 MCG, 3 IN 1 WEEKS, SUBCUTANEOUS
     Route: 058
     Dates: start: 20081001, end: 20090528
  2. REMERON [Suspect]
     Indication: DEPRESSION
     Dates: end: 20090101
  3. KLONOPIN [Suspect]
     Indication: DEPRESSION
  4. ZOLOFT [Suspect]
     Indication: DEPRESSION
  5. XANAX [Suspect]
  6. MOTRIN [Suspect]

REACTIONS (9)
  - ALCOHOL ABUSE [None]
  - ANXIETY [None]
  - DEPRESSION [None]
  - DISEASE RECURRENCE [None]
  - HYPOAESTHESIA [None]
  - INSOMNIA [None]
  - MULTIPLE DRUG OVERDOSE [None]
  - SKIN LACERATION [None]
  - SUICIDE ATTEMPT [None]
